FAERS Safety Report 9136784 (Version 2)
Quarter: 2013Q1

REPORT INFORMATION
  Report Type: Spontaneous
  Country: US (occurrence: US)
  Receive Date: 20130304
  Receipt Date: 20130314
  Transmission Date: 20140127
  Serious: Yes (Other)
  Sender: FDA-Public Use
  Company Number: US-GILEAD-2013-0070712

PATIENT
  Sex: Female

DRUGS (7)
  1. LETAIRIS [Suspect]
     Indication: PULMONARY ARTERIAL HYPERTENSION
     Dosage: 10 MG, QD
     Route: 048
     Dates: start: 201212
  2. SILDENAFIL [Concomitant]
  3. PROZAC [Concomitant]
  4. LASIX                              /00032601/ [Concomitant]
  5. LEVOTHYROXIN [Concomitant]
  6. KCL [Concomitant]
  7. VIT D [Concomitant]

REACTIONS (1)
  - Unevaluable event [Unknown]
